FAERS Safety Report 10251089 (Version 1)
Quarter: 2014Q2

REPORT INFORMATION
  Report Type: Report from Study
  Country: US (occurrence: US)
  Receive Date: 20140620
  Receipt Date: 20140620
  Transmission Date: 20141212
  Serious: Yes (Other)
  Sender: FDA-Public Use
  Company Number: US-ABBVIE-14P-163-1247119-00

PATIENT
  Age: 60 Year
  Sex: Male
  Weight: 94.43 kg

DRUGS (3)
  1. HUMIRA [Suspect]
     Indication: CROHN^S DISEASE
     Dates: start: 201405, end: 201405
  2. UNKNOWN MEDICATION [Concomitant]
     Indication: PROPHYLAXIS
  3. UNKNOWN MEDICATION [Concomitant]
     Indication: BOWEL MOVEMENT IRREGULARITY

REACTIONS (3)
  - Haemoglobin decreased [Recovering/Resolving]
  - Gastrointestinal haemorrhage [Recovered/Resolved]
  - Crohn^s disease [Recovering/Resolving]
